FAERS Safety Report 5269696-9 (Version None)
Quarter: 2007Q1

REPORT INFORMATION
  Report Type: 
  Country: None (occurrence: None)
  Receive Date: 20070313
  Receipt Date: 20070226
  Transmission Date: 20070707
  Serious: Yes (Hospitalization)
  Sender: FDA-Public Use
  Company Number: 2007-153161-NL

PATIENT
  Age: 16 Year
  Sex: Female

DRUGS (1)
  1. ETONOGESTREL [Suspect]
     Dosage: DF
     Dates: start: 20061001, end: 20070101

REACTIONS (6)
  - ACUTE TONSILLITIS [None]
  - AUTOIMMUNE DISORDER [None]
  - DIARRHOEA [None]
  - NAUSEA [None]
  - SYSTEMIC LUPUS ERYTHEMATOSUS [None]
  - VASCULITIS [None]
